FAERS Safety Report 15968969 (Version 1)
Quarter: 2019Q1

REPORT INFORMATION
  Report Type: Spontaneous
  Country: TW (occurrence: TW)
  Receive Date: 20190215
  Receipt Date: 20190215
  Transmission Date: 20190418
  Serious: Yes (Other)
  Sender: FDA-Public Use
  Company Number: TW-BAYER-2019-029760

PATIENT
  Age: 70 Year
  Sex: Male

DRUGS (4)
  1. TICAGRELOR. [Interacting]
     Active Substance: TICAGRELOR
     Indication: ANTIPLATELET THERAPY
  2. WARFARIN [Interacting]
     Active Substance: WARFARIN
     Indication: CARDIAC VENTRICULAR THROMBOSIS
  3. ENOXAPARIN [Interacting]
     Active Substance: ENOXAPARIN
     Dosage: 1 MG/KG, BID
  4. ACETYLSALICYLIC ACID (CARDIO) [Suspect]
     Active Substance: ASPIRIN
     Indication: ANTIPLATELET THERAPY
     Dosage: UNK

REACTIONS (5)
  - Gastrooesophageal reflux disease [None]
  - Gastrointestinal haemorrhage [Recovered/Resolved]
  - Melaena [Recovered/Resolved]
  - Haemoglobin decreased [None]
  - Labelled drug-drug interaction medication error [Recovered/Resolved]
